FAERS Safety Report 16711179 (Version 1)
Quarter: 2019Q3

REPORT INFORMATION
  Report Type: Spontaneous
  Country: GB (occurrence: GB)
  Receive Date: 20190816
  Receipt Date: 20190816
  Transmission Date: 20191004
  Serious: Yes (Other)
  Sender: FDA-Public Use
  Company Number: GB-US WORLDMEDS, LLC-E2B_00003056

PATIENT
  Age: 87 Year
  Sex: Female

DRUGS (16)
  1. ALENDRONIC ACID [Concomitant]
     Active Substance: ALENDRONIC ACID
     Dates: start: 20180413, end: 20190501
  2. BACLOFEN. [Concomitant]
     Active Substance: BACLOFEN
     Dates: start: 20150714
  3. LACRI-LUBE [Concomitant]
     Dates: start: 20150714
  4. MIDODRINE HYDROCHLORIDE. [Concomitant]
     Active Substance: MIDODRINE HYDROCHLORIDE
     Dates: start: 20190501
  5. CO-BENELDOPA [Concomitant]
     Active Substance: BENSERAZIDE HYDROCHLORIDE\LEVODOPA
     Dates: start: 20160506
  6. LACTULOSE. [Concomitant]
     Active Substance: LACTULOSE
     Dates: start: 20150529
  7. GABAPENTIN. [Concomitant]
     Active Substance: GABAPENTIN
     Dates: start: 20151009
  8. PARACETAMOL [Concomitant]
     Active Substance: ACETAMINOPHEN
     Dosage: TWO TABLETS TO BE TAKEN EVERY FOUR TO SIX HOURS
     Dates: start: 20151005
  9. SAFINAMIDE [Suspect]
     Active Substance: SAFINAMIDE
     Dates: start: 20190708
  10. BALNEUM                            /01648802/ [Concomitant]
     Indication: STASIS DERMATITIS
     Dates: start: 20180622
  11. COCODAMOL [Concomitant]
     Active Substance: ACETAMINOPHEN\CODEINE PHOSPHATE
     Dates: start: 20190628, end: 20190710
  12. EVACAL D3 [Concomitant]
     Dates: start: 20180604, end: 20190501
  13. OMEPRAZOLE. [Concomitant]
     Active Substance: OMEPRAZOLE
     Dates: start: 20161026
  14. CIRCADIN [Concomitant]
     Active Substance: MELATONIN
     Dates: start: 20180312
  15. FLUDROCORTISONE [Concomitant]
     Active Substance: FLUDROCORTISONE
     Dates: start: 20170508, end: 20190501
  16. POLYVINYL ALCOHOL [Concomitant]
     Active Substance: POLYVINYL ALCOHOL
     Dates: start: 20150714

REACTIONS (1)
  - Vision blurred [Recovered/Resolved]

NARRATIVE: CASE EVENT DATE: 20190715
